FAERS Safety Report 18539908 (Version 1)
Quarter: 2020Q4

REPORT INFORMATION
  Report Type: Spontaneous
  Country: US (occurrence: US)
  Receive Date: 20201005
  Receipt Date: 20201005
  Transmission Date: 20210114
  Serious: Yes (Death, Other)
  Sender: FDA-Public Use
  Company Number: None

PATIENT
  Age: 7 Decade
  Sex: Male

DRUGS (5)
  1. INTERFERON ALFA-1B [Suspect]
     Active Substance: INTERFERON ALFA-1B
     Indication: COVID-19
  2. LOPINAVIR\RITONAVIR [Suspect]
     Active Substance: LOPINAVIR\RITONAVIR
     Indication: COVID-19
  3. METHYLPREDNISOLONE. [Suspect]
     Active Substance: METHYLPREDNISOLONE
     Indication: COVID-19
  4. IMMUNOGLOBULINS, INTRAVENOUS [Suspect]
     Active Substance: HUMAN IMMUNOGLOBULIN G
     Indication: COVID-19
  5. THYMOSIN [Suspect]
     Active Substance: THYMOSIN
     Indication: COVID-19

REACTIONS (9)
  - Multiple organ dysfunction syndrome [None]
  - Liver disorder [None]
  - Hypothermia [None]
  - Fatigue [None]
  - Cardiac disorder [None]
  - Cough [None]
  - Angiopathy [None]
  - Rhinorrhoea [None]
  - Renal disorder [None]
